FAERS Safety Report 23393651 (Version 1)
Quarter: 2024Q1

REPORT INFORMATION
  Report Type: Spontaneous
  Country: CN (occurrence: CN)
  Receive Date: 20240111
  Receipt Date: 20240111
  Transmission Date: 20240409
  Serious: Yes (Hospitalization)
  Sender: FDA-Public Use
  Company Number: CN-PFIZER INC-PV202400001424

PATIENT
  Age: 6 Year
  Sex: Male
  Weight: 22 kg

DRUGS (3)
  1. ZITHROMAX [Suspect]
     Active Substance: AZITHROMYCIN DIHYDRATE
     Indication: Mycoplasma infection
     Dosage: 0.22 G, 1X/DAY (SELF-PREPARED)
     Route: 048
     Dates: start: 20231219, end: 20231220
  2. AZITHROMYCIN [Suspect]
     Active Substance: AZITHROMYCIN
     Indication: Mycoplasma infection
     Dosage: 0.22 G, 1X/DAY
     Route: 041
     Dates: start: 20231221, end: 20231222
  3. ERYTHROMYCIN [Suspect]
     Active Substance: ERYTHROMYCIN
     Indication: Anti-infective therapy
     Dosage: UNK
     Dates: start: 20231223, end: 20231228

REACTIONS (7)
  - Drug hypersensitivity [Recovering/Resolving]
  - Urticaria [Recovering/Resolving]
  - Cross sensitivity reaction [Recovering/Resolving]
  - Drug ineffective [Unknown]
  - Rash [Recovered/Resolved with Sequelae]
  - Off label use [Unknown]
  - Product use issue [Unknown]

NARRATIVE: CASE EVENT DATE: 20231219
